FAERS Safety Report 7702458-9 (Version None)
Quarter: 2011Q3

REPORT INFORMATION
  Report Type: 
  Country: None (occurrence: None)
  Receive Date: 20110823
  Receipt Date: 20110817
  Transmission Date: 20111222
  Serious: Yes (Hospitalization)
  Sender: FDA-Public Use
  Company Number: CA-BRISTOL-MYERS SQUIBB COMPANY-13950837

PATIENT
  Age: 30 Year
  Sex: Female

DRUGS (14)
  1. AXERT [Concomitant]
     Indication: MIGRAINE
  2. PREDNISONE [Concomitant]
  3. IMODIUM [Concomitant]
     Indication: MIGRAINE
  4. ORENCIA [Suspect]
     Indication: JUVENILE ARTHRITIS
     Dosage: 54;16OT12JN,9JL,3AG,6S,1OT07,24JA08,21F,20MR,18AP,19MY,13JN,11JL,15AU,12SE,7OCT,4N,25N08,25N10,7JL11
     Route: 042
     Dates: start: 20061018
  5. METOPROLOL [Concomitant]
  6. OXYCONTIN [Concomitant]
  7. TYLENOL NO 1 [Concomitant]
  8. GRAVOL TAB [Concomitant]
  9. RABEPRAZOLE SODIUM [Concomitant]
     Indication: MIGRAINE
  10. ORENCIA [Suspect]
     Indication: RHEUMATOID ARTHRITIS
     Dosage: 54;16OT12JN,9JL,3AG,6S,1OT07,24JA08,21F,20MR,18AP,19MY,13JN,11JL,15AU,12SE,7OCT,4N,25N08,25N10,7JL11
     Route: 042
     Dates: start: 20061018
  11. VITAMIN D [Concomitant]
  12. IMOVANE [Concomitant]
  13. CALCIUM CARBONATE [Concomitant]
  14. OXYCET [Concomitant]

REACTIONS (14)
  - HYPOTENSION [None]
  - ABDOMINAL DISCOMFORT [None]
  - MALAISE [None]
  - ANAEMIA [None]
  - CLOSTRIDIAL INFECTION [None]
  - UROSEPSIS [None]
  - PAIN [None]
  - DYSGEUSIA [None]
  - DEHYDRATION [None]
  - VOMITING [None]
  - INFECTION [None]
  - ARTHRALGIA [None]
  - DIARRHOEA [None]
  - NAUSEA [None]
